FAERS Safety Report 7123038-2 (Version None)
Quarter: 2010Q4

REPORT INFORMATION
  Report Type: 
  Country: None (occurrence: None)
  Receive Date: 20101125
  Receipt Date: 20101025
  Transmission Date: 20110411
  Serious: Yes (Other)
  Sender: FDA-Public Use
  Company Number: GB-AMGEN-QUU434360

PATIENT

DRUGS (19)
  1. ETANERCEPT [Suspect]
     Indication: RHEUMATOID ARTHRITIS
     Dosage: 25 MG, 2 TIMES/WK
     Route: 058
     Dates: start: 20040812
  2. METHOTREXATE [Concomitant]
  3. ATENOLOL [Concomitant]
     Dosage: UNK UNK, UNK
  4. ATENOLOL [Concomitant]
     Dosage: UNKNOWN
  5. BENDROFLUMETHIAZIDE [Concomitant]
     Dosage: UNK UNK, UNK
  6. BENDROFLUMETHIAZIDE [Concomitant]
     Dosage: UNKNOWN
  7. CALCICHEW [Concomitant]
     Dosage: UNKNOWN
  8. SULFASALAZINE [Concomitant]
  9. FOLIC ACID [Concomitant]
     Dosage: UNK UNK, UNK
  10. FOLIC ACID [Concomitant]
  11. FOSAMAX [Concomitant]
     Dosage: UNKNOWN
  12. LANSOPRAZOLE [Concomitant]
     Dosage: UNK UNK, UNK
  13. LANSOPRAZOLE [Concomitant]
     Dosage: UNKNOWN
  14. LISINOPRIL [Concomitant]
     Dosage: UNK UNK, UNK
  15. LISINOPRIL [Concomitant]
     Dosage: UNKNOWN
  16. AMLODIPINE [Concomitant]
     Dosage: UNK UNK, UNK
  17. AMLODIPINE [Concomitant]
     Dosage: UNKNOWN
  18. CELECOXIB [Concomitant]
     Dosage: UNK UNK, UNK
  19. CELECOXIB [Concomitant]
     Dosage: UNKNOWN

REACTIONS (3)
  - PERIPHERAL VASCULAR DISORDER [None]
  - SKIN ULCER [None]
  - WOUND INFECTION STAPHYLOCOCCAL [None]
